FAERS Safety Report 10830583 (Version 1)
Quarter: 2015Q1

REPORT INFORMATION
  Report Type: Spontaneous
  Country: NL (occurrence: NL)
  Receive Date: 20150219
  Receipt Date: 20150219
  Transmission Date: 20150721
  Serious: Yes (Hospitalization)
  Sender: FDA-Public Use
  Company Number: NL-ASPEN PHARMA TRADING LIMITED US-AG-2015-000729

PATIENT
  Age: 18 Year
  Sex: Female
  Weight: 61 kg

DRUGS (4)
  1. IMURAN [Suspect]
     Active Substance: AZATHIOPRINE
     Indication: CROHN^S DISEASE
     Route: 065
  2. HUMIRA [Suspect]
     Active Substance: ADALIMUMAB
     Indication: CROHN^S DISEASE
     Route: 058
     Dates: start: 20140601, end: 20141015
  3. LANVIS TABLET 40MG [Suspect]
     Active Substance: THIOGUANINE
     Indication: PRODUCT USED FOR UNKNOWN INDICATION
     Dosage: HAD ONE DOSE
     Dates: start: 201410, end: 201410
  4. ORAL CONTRACEPTION [Concomitant]
     Indication: CONTRACEPTION
     Route: 048

REACTIONS (4)
  - Pancreatitis [Unknown]
  - Alopecia [Recovering/Resolving]
  - Psoriasis [Recovering/Resolving]
  - Rash pustular [Recovering/Resolving]

NARRATIVE: CASE EVENT DATE: 20141001
